FAERS Safety Report 9869038 (Version 2)
Quarter: 2014Q1

REPORT INFORMATION
  Report Type: Spontaneous
  Country: US (occurrence: US)
  Receive Date: 20140205
  Receipt Date: 20140304
  Transmission Date: 20141002
  Serious: No
  Sender: FDA-Public Use
  Company Number: US-009507513-1402USA000245

PATIENT
  Age: 44 Year
  Sex: Male

DRUGS (2)
  1. JANUVIA [Suspect]
     Indication: DIABETES MELLITUS
     Dosage: 50 MG, QD
     Route: 048
     Dates: start: 201101, end: 20140126
  2. JANUVIA [Suspect]
     Dosage: 50 MG, QD
     Route: 048
     Dates: start: 20140130

REACTIONS (2)
  - Ocular hyperaemia [Recovered/Resolved]
  - Drug dose omission [Unknown]
